FAERS Safety Report 8467821-X (Version None)
Quarter: 2012Q2

REPORT INFORMATION
  Report Type: 
  Country: None (occurrence: None)
  Receive Date: 20120626
  Receipt Date: 20120620
  Transmission Date: 20120825
  Serious: Yes (Hospitalization)
  Sender: FDA-Public Use
  Company Number: US-GLAXOSMITHKLINE-A0892619A

PATIENT
  Age: 64 Year
  Sex: Male

DRUGS (4)
  1. SULFONYLUREAS [Concomitant]
  2. AVANDIA [Suspect]
     Indication: DIABETES MELLITUS
     Dosage: 4MG TWICE PER DAY
     Route: 048
     Dates: start: 20031216, end: 20051209
  3. METFORMIN HCL [Concomitant]
  4. PRANDIN [Concomitant]

REACTIONS (3)
  - ARTERIAL BYPASS OPERATION [None]
  - CEREBROVASCULAR ACCIDENT [None]
  - CEREBELLAR INFARCTION [None]
